FAERS Safety Report 25661894 (Version 3)
Quarter: 2025Q4

REPORT INFORMATION
  Report Type: Spontaneous
  Country: JP (occurrence: JP)
  Receive Date: 20250809
  Receipt Date: 20251210
  Transmission Date: 20260117
  Serious: Yes (Death, Other)
  Sender: JAZZ
  Company Number: JP-JAZZ PHARMACEUTICALS-2025-JP-014840

PATIENT
  Age: 8 Decade
  Sex: Male

DRUGS (1)
  1. VYXEOS [Suspect]
     Active Substance: CYTARABINE\DAUNORUBICIN
     Indication: Acute myeloid leukaemia
     Dosage: UNK
     Dates: start: 20250526, end: 20250530

REACTIONS (5)
  - Respiratory failure [Fatal]
  - Acute myeloid leukaemia recurrent [Fatal]
  - Acute myeloid leukaemia [Fatal]
  - Blast cell count increased [Fatal]
  - Herpes virus infection [Not Recovered/Not Resolved]

NARRATIVE: CASE EVENT DATE: 20250604
